FAERS Safety Report 17988761 (Version 1)
Quarter: 2020Q3

REPORT INFORMATION
  Report Type: Spontaneous
  Country: ES (occurrence: ES)
  Receive Date: 20200707
  Receipt Date: 20200707
  Transmission Date: 20201103
  Serious: Yes (Death, Other)
  Sender: FDA-Public Use
  Company Number: ES-BAYER-2020-130821

PATIENT
  Age: 50 Year
  Sex: Male

DRUGS (2)
  1. STIVARGA [Suspect]
     Active Substance: REGORAFENIB
     Indication: COLORECTAL CANCER METASTATIC
     Dosage: DAILY DOSE 120 MG
  2. STIVARGA [Suspect]
     Active Substance: REGORAFENIB
     Indication: COLORECTAL CANCER METASTATIC
     Dosage: DAILY DOSE 160 MG
     Dates: start: 201609

REACTIONS (8)
  - Lung disorder [None]
  - Pyrexia [None]
  - Palmar-plantar erythrodysaesthesia syndrome [None]
  - Musculoskeletal pain [None]
  - Dysphonia [None]
  - Asthenia [Recovering/Resolving]
  - Acute myocardial infarction [None]
  - Myocardial ischaemia [None]

NARRATIVE: CASE EVENT DATE: 201803
